FAERS Safety Report 7987733-5 (Version None)
Quarter: 2011Q4

REPORT INFORMATION
  Report Type: 
  Country: None (occurrence: None)
  Receive Date: 20111216
  Receipt Date: 20110504
  Transmission Date: 20120403
  Serious: No
  Sender: FDA-Public Use
  Company Number: US-BRISTOL-MYERS SQUIBB COMPANY-15717275

PATIENT
  Age: 2 Decade
  Sex: Male

DRUGS (2)
  1. ABILIFY [Suspect]
     Indication: CONVULSION
     Dosage: 1DF=10MG OR 15MG STARTED ABOUT 4-5 MONTHS AGO
     Dates: start: 20100101
  2. INVEGA [Suspect]
     Indication: CONVULSION
     Dosage: STARTED 6 MONTHS AGO INVEGA SUSTENNA
     Dates: start: 20100101

REACTIONS (1)
  - WEIGHT INCREASED [None]
